FAERS Safety Report 4802142-5 (Version None)
Quarter: 2005Q4

REPORT INFORMATION
  Report Type: 
  Country: None (occurrence: None)
  Receive Date: 20051012
  Receipt Date: 20051003
  Transmission Date: 20060501
  Serious: Yes (Hospitalization)
  Sender: FDA-Public Use
  Company Number: US-2005-014125

PATIENT
  Age: 26 Year
  Sex: Female

DRUGS (2)
  1. BETASERON (INTERFERON BETA - 1B) INJECTION, 250UG [Suspect]
     Indication: MULTIPLE SCLEROSIS
     Dosage: UNK, SUBCUTANEOUS
     Route: 058
     Dates: start: 20030901, end: 20041001
  2. BETASERON (INTERFERON BETA - 1B) INJECTION, 250UG [Suspect]
     Indication: MULTIPLE SCLEROSIS
     Dosage: UNK, SUBCUTANEOUS
     Route: 058
     Dates: start: 20050501, end: 20050521

REACTIONS (4)
  - CEREBROVASCULAR ACCIDENT [None]
  - COMA [None]
  - DRUG EXPOSURE DURING PREGNANCY [None]
  - POSTPARTUM DISORDER [None]
